FAERS Safety Report 9071796 (Version 1)
Quarter: 2013Q1

REPORT INFORMATION
  Report Type: Spontaneous
  Country: US (occurrence: US)
  Receive Date: 20130129
  Receipt Date: 20130129
  Transmission Date: 20140127
  Serious: No
  Sender: FDA-Public Use
  Company Number: US-B.I. PHARMACEUTICALS,INC./RIDGEFIELD-2013-BI-02012BP

PATIENT
  Sex: Male
  Weight: 91 kg

DRUGS (1)
  1. SPIRIVA [Suspect]
     Indication: BRONCHITIS CHRONIC
     Dosage: 18 MG
     Route: 055
     Dates: start: 201205

REACTIONS (2)
  - Drug ineffective [Unknown]
  - Product quality issue [Unknown]
